FAERS Safety Report 24223823 (Version 1)
Quarter: 2024Q3

REPORT INFORMATION
  Report Type: Spontaneous
  Country: US (occurrence: US)
  Receive Date: 20240819
  Receipt Date: 20240819
  Transmission Date: 20241016
  Serious: No
  Sender: BAYER
  Company Number: US-BAYER-2024A116758

PATIENT
  Age: 67 Year
  Sex: Female

DRUGS (1)
  1. MIRENA [Suspect]
     Active Substance: LEVONORGESTREL
     Indication: Coital bleeding
     Dosage: 20?G/DAY
     Route: 015
     Dates: start: 201808

REACTIONS (3)
  - Genital haemorrhage [None]
  - Off label use of device [None]
  - Device use issue [None]
